FAERS Safety Report 8417524-2 (Version None)
Quarter: 2012Q2

REPORT INFORMATION
  Report Type: 
  Country: None (occurrence: None)
  Receive Date: 20120606
  Receipt Date: 20120524
  Transmission Date: 20120825
  Serious: Yes (Other)
  Sender: FDA-Public Use
  Company Number: BE-MYLANLABS-2012S1010888

PATIENT
  Age: 56 Year
  Sex: Male

DRUGS (3)
  1. DICLOFENAC SODIUM [Suspect]
     Indication: PAIN IN EXTREMITY
     Dosage: 2 X 100 MG/DAY
     Route: 065
     Dates: start: 20110501
  2. LOSARTAN [Concomitant]
     Indication: HYPERTENSION
     Dosage: 50 MG/DAY
     Route: 065
  3. PRAVASTATIN [Concomitant]
     Indication: DYSLIPIDAEMIA
     Dosage: 20 MG/DAY
     Route: 065

REACTIONS (6)
  - DYSPNOEA [None]
  - SPUTUM DISCOLOURED [None]
  - COUGH [None]
  - PULMONARY OEDEMA [None]
  - PRODUCTIVE COUGH [None]
  - HAEMOPTYSIS [None]
